FAERS Safety Report 9292099 (Version 1)
Quarter: 2012Q4

REPORT INFORMATION
  Report Type: Spontaneous
  Country: US (occurrence: None)
  Receive Date: 20121005
  Receipt Date: 20121005
  Transmission Date: 20130627
  Serious: Yes (Other)
  Sender: FDA-Public Use
  Company Number: 1429352

PATIENT
  Age: 49 Year
  Sex: Female

DRUGS (3)
  1. NALOXONE [Suspect]
  2. DILAUDID [Suspect]
  3. CHEMOTHERAPEUTICS [Concomitant]

REACTIONS (1)
  - Vaginal haemorrhage [None]
